FAERS Safety Report 9856987 (Version 1)
Quarter: 2014Q1

REPORT INFORMATION
  Report Type: Spontaneous
  Country: CN (occurrence: None)
  Receive Date: 20140128
  Receipt Date: 20140128
  Transmission Date: 20141002
  Serious: Yes (Other)
  Sender: FDA-Public Use
  Company Number: B0963480A

PATIENT
  Age: 20 Year
  Sex: Female

DRUGS (4)
  1. PAROXETINE HYDROCHLORIDE [Suspect]
     Indication: OBSESSIVE-COMPULSIVE DISORDER
     Dosage: 5 TABLET/[ER DAY/ VAGINAL
     Route: 067
  2. FLUPENTIXOL [Concomitant]
  3. MELITRACEN HYDROCHLORIDE [Concomitant]
  4. CLONAZEPAM [Concomitant]

REACTIONS (2)
  - Exposure via body fluid [None]
  - Exposure during pregnancy [None]
